FAERS Safety Report 8575185-6 (Version None)
Quarter: 2012Q3

REPORT INFORMATION
  Report Type: 
  Country: None (occurrence: None)
  Receive Date: 20120807
  Receipt Date: 20120725
  Transmission Date: 20120928
  Serious: Yes (Hospitalization)
  Sender: FDA-Public Use
  Company Number: JP-ELI_LILLY_AND_COMPANY-JP201207005239

PATIENT
  Age: 85 Year

DRUGS (1)
  1. ZYPREXA [Suspect]
     Dosage: UNK
     Route: 048
     Dates: start: 20120711

REACTIONS (2)
  - NEOPLASM MALIGNANT [None]
  - DYSGEUSIA [None]
